FAERS Safety Report 8332783-2 (Version None)
Quarter: 2012Q2

REPORT INFORMATION
  Report Type: 
  Country: None (occurrence: None)
  Receive Date: 20120503
  Receipt Date: 20120423
  Transmission Date: 20120825
  Serious: Yes (Hospitalization, Other)
  Sender: FDA-Public Use
  Company Number: FR-AMGEN-FRASP2012026258

PATIENT
  Sex: Male

DRUGS (4)
  1. ENBREL [Suspect]
     Indication: RHEUMATOID ARTHRITIS
     Dosage: 50 MG, WEEKLY
  2. FOLIC ACID [Concomitant]
     Dosage: 3 TABLESTS
  3. KETOPROFEN [Concomitant]
     Dosage: 100 MG, BID
  4. METHOTREXATE [Concomitant]
     Dosage: 10 MG

REACTIONS (4)
  - BURSITIS INFECTIVE [None]
  - FOREIGN BODY [None]
  - PYREXIA [None]
  - PROSTATITIS [None]
